FAERS Safety Report 6404211-5 (Version None)
Quarter: 2009Q4

REPORT INFORMATION
  Report Type: 
  Country: None (occurrence: None)
  Receive Date: 20091016
  Receipt Date: 20091005
  Transmission Date: 20100525
  Serious: Yes (Other)
  Sender: FDA-Public Use
  Company Number: BR-PFIZER INC-2009256962

PATIENT
  Age: 26 Year

DRUGS (2)
  1. DOSTINEX [Suspect]
     Indication: BLOOD PROLACTIN INCREASED
     Dosage: 0.5 MG, WEEKLY
     Route: 048
     Dates: start: 20090702
  2. AMOXICILLIN [Concomitant]
     Dosage: UNK
     Route: 048

REACTIONS (2)
  - DYSPNOEA [None]
  - PNEUMONIA [None]
